FAERS Safety Report 15700197 (Version 1)
Quarter: 2018Q4

REPORT INFORMATION
  Report Type: Spontaneous
  Country: ES (occurrence: ES)
  Receive Date: 20181207
  Receipt Date: 20181207
  Transmission Date: 20190205
  Serious: Yes (Hospitalization, Other)
  Sender: FDA-Public Use
  Company Number: ES-ACCORD-095148

PATIENT
  Age: 54 Year
  Sex: Male

DRUGS (6)
  1. EPLERENONE. [Suspect]
     Active Substance: EPLERENONE
     Indication: CARDIAC FAILURE CONGESTIVE
     Route: 048
     Dates: start: 20140506, end: 20171108
  2. ENTRESTO [Interacting]
     Active Substance: SACUBITRIL\VALSARTAN
     Indication: ESSENTIAL HYPERTENSION
     Route: 048
     Dates: start: 20161121, end: 20171108
  3. FUROSEMIDE. [Interacting]
     Active Substance: FUROSEMIDE
     Indication: CARDIAC FAILURE CONGESTIVE
     Route: 048
     Dates: start: 20140506, end: 20171108
  4. EZETIMIBE/SIMVASTATIN [Concomitant]
     Indication: DYSLIPIDAEMIA
     Dosage: STRENGTH: 10 MG/20 MG?30 TABLETS
     Route: 048
     Dates: start: 20161010
  5. ENANTYUM [Interacting]
     Active Substance: DEXKETOPROFEN TROMETAMOL
     Indication: PRODUCT USED FOR UNKNOWN INDICATION
     Dosage: 12.5 MG TABLETS, 20 TABLET
     Route: 048
     Dates: start: 20171028, end: 20171108
  6. TROMALYT [Concomitant]
     Active Substance: ASPIRIN
     Indication: ISCHAEMIC CARDIOMYOPATHY
     Dosage: TROMALYT 150, LONG-ACTING HARD CAPSULES, 28 CAPS
     Route: 048
     Dates: start: 20160421

REACTIONS (3)
  - Acute kidney injury [Recovered/Resolved]
  - Hyperkalaemia [Recovered/Resolved]
  - Drug interaction [Unknown]

NARRATIVE: CASE EVENT DATE: 20171106
